FAERS Safety Report 5977697-8 (Version None)
Quarter: 2008Q4

REPORT INFORMATION
  Report Type: 
  Country: None (occurrence: None)
  Receive Date: 20081203
  Receipt Date: 20081125
  Transmission Date: 20090506
  Serious: Yes (Life-Threatening, Hospitalization)
  Sender: FDA-Public Use
  Company Number: FR-ROCHE-599587

PATIENT
  Sex: Male

DRUGS (4)
  1. VESANOID [Suspect]
     Route: 048
     Dates: start: 20080704, end: 20080724
  2. CYTARABINE [Suspect]
     Route: 042
     Dates: start: 20080704, end: 20080710
  3. ZAVEDOS [Suspect]
     Route: 042
     Dates: start: 20080704, end: 20080708
  4. TAVANIC [Concomitant]
     Dosage: FORMULATION REPORTED AS INJECTABLE SOLUTION.
     Route: 042
     Dates: start: 20080704

REACTIONS (3)
  - ANAEMIA [None]
  - LEUKOPENIA [None]
  - THROMBOCYTOPENIA [None]
